FAERS Safety Report 10161746 (Version 1)
Quarter: 2014Q2

REPORT INFORMATION
  Report Type: Spontaneous
  Country: US (occurrence: None)
  Receive Date: 20140508
  Receipt Date: 20140508
  Transmission Date: 20141212
  Serious: Yes (Life-Threatening, Hospitalization, Disabling, Other)
  Sender: FDA-Public Use
  Company Number: None

PATIENT
  Age: 88 Year
  Sex: Male
  Weight: 58.97 kg

DRUGS (1)
  1. XARELTO [Suspect]
     Route: 048

REACTIONS (11)
  - Blood glucose fluctuation [None]
  - Fall [None]
  - Muscular weakness [None]
  - Pain [None]
  - Dehydration [None]
  - Arrhythmia [None]
  - Decreased appetite [None]
  - Weight decreased [None]
  - Dizziness [None]
  - Disorientation [None]
  - Depression [None]
